FAERS Safety Report 19884531 (Version 2)
Quarter: 2021Q4

REPORT INFORMATION
  Report Type: Other
  Country: DE (occurrence: DE)
  Receive Date: 20210927
  Receipt Date: 20211011
  Transmission Date: 20220303
  Serious: Yes (Hospitalization, Congenital Anomaly, Other)
  Sender: FDA-Public Use
  Company Number: DE-EMBRYOTOX-202012195

PATIENT
  Age: 1 Day
  Sex: Female
  Weight: 2.52 kg

DRUGS (1)
  1. OXYCODONE [Suspect]
     Active Substance: OXYCODONE
     Indication: Arthralgia
     Dosage: 90 MILLIGRAM, QD (3 SEPARATED DOSES)
     Route: 064
     Dates: start: 20200219, end: 20201111

REACTIONS (11)
  - Small for dates baby [Recovered/Resolved]
  - Infantile apnoea [Recovered/Resolved]
  - Seizure [Recovering/Resolving]
  - Agitation neonatal [Recovered/Resolved]
  - Drug withdrawal syndrome neonatal [Recovered/Resolved]
  - Hypertension neonatal [Recovered/Resolved]
  - Atrial septal defect [Not Recovered/Not Resolved]
  - Selective eating disorder [Recovered/Resolved]
  - Temperature regulation disorder [Recovered/Resolved]
  - Pulmonary artery stenosis congenital [Not Recovered/Not Resolved]
  - Foetal exposure during pregnancy [Unknown]

NARRATIVE: CASE EVENT DATE: 20201111
